FAERS Safety Report 24825456 (Version 1)
Quarter: 2025Q1

REPORT INFORMATION
  Report Type: Spontaneous
  Country: US (occurrence: None)
  Receive Date: 20250109
  Receipt Date: 20250109
  Transmission Date: 20250409
  Serious: Yes (Other)
  Sender: FDA-CTU
  Company Number: None

PATIENT
  Age: 76 Year
  Sex: Female
  Weight: 48.5 kg

DRUGS (6)
  1. METHYLENE BLUE [Suspect]
     Active Substance: METHYLENE BLUE
     Dosage: 1 TABLET DAILY
     Dates: start: 20241216, end: 20241226
  2. ZOLOFT [Suspect]
     Active Substance: SERTRALINE HYDROCHLORIDE
  3. SYNTHROID [Concomitant]
     Active Substance: LEVOTHYROXINE SODIUM
  4. mementine [Concomitant]
  5. Pantromozole [Concomitant]
  6. Famonadine [Concomitant]

REACTIONS (5)
  - Cognitive disorder [None]
  - Aphasia [None]
  - Contraindicated product administered [None]
  - Confusional state [None]
  - Product label issue [None]

NARRATIVE: CASE EVENT DATE: 20241227
